FAERS Safety Report 13194076 (Version 1)
Quarter: 2017Q1

REPORT INFORMATION
  Report Type: Spontaneous
  Country: US (occurrence: US)
  Receive Date: 20170207
  Receipt Date: 20170207
  Transmission Date: 20170428
  Serious: No
  Sender: FDA-Public Use
  Company Number: US-B.I. PHARMACEUTICALS,INC./RIDGEFIELD-2017-BI-005496

PATIENT
  Sex: Female

DRUGS (2)
  1. BENICAR [Concomitant]
     Active Substance: OLMESARTAN MEDOXOMIL
     Indication: HYPERTENSION
     Route: 065
  2. PRADAXA [Suspect]
     Active Substance: DABIGATRAN ETEXILATE MESYLATE
     Indication: CARDIAC PACEMAKER INSERTION
     Dosage: 150 MG TWICE DAILY;  FORM STRENGTH: 150 MG; FORMULATION: CAPSULE ADMINISTRATION CORRECT? YES  ACTION
     Route: 048

REACTIONS (3)
  - Off label use [Not Recovered/Not Resolved]
  - Vascular injury [Not Recovered/Not Resolved]
  - Contusion [Not Recovered/Not Resolved]
